FAERS Safety Report 23906389 (Version 1)
Quarter: 2024Q2

REPORT INFORMATION
  Report Type: Spontaneous
  Country: FR (occurrence: FR)
  Receive Date: 20240528
  Receipt Date: 20240528
  Transmission Date: 20240716
  Serious: Yes (Life-Threatening, Other)
  Sender: FDA-Public Use
  Company Number: FR-PIRAMAL CRITICAL CARE LIMITED-2024-PPL-000379

PATIENT

DRUGS (6)
  1. SUFENTANIL [Suspect]
     Active Substance: SUFENTANIL
     Indication: General anaesthesia
     Dosage: NOT PRECISE (NON PR?CIS?E )
     Route: 042
     Dates: start: 20230614, end: 20230614
  2. SEVOFLURANE [Suspect]
     Active Substance: SEVOFLURANE
     Indication: General anaesthesia
     Dosage: NOT PRECISE (NON PR?CIS?E)
     Route: 042
     Dates: start: 20230614, end: 20230614
  3. MIDAZOLAM HYDROCHLORIDE [Suspect]
     Active Substance: MIDAZOLAM HYDROCHLORIDE
     Indication: General anaesthesia
     Dosage: NOT PRECISE (NON PR?CIS?E)
     Route: 042
     Dates: start: 20230614, end: 20230614
  4. TRACRIUM [Suspect]
     Active Substance: ATRACURIUM BESYLATE
     Indication: General anaesthesia
     Dosage: NOT PRECISE (NON PR?CIS?E)
     Route: 042
     Dates: start: 20230614, end: 20230614
  5. DIPRIVAN [Suspect]
     Active Substance: ISOPROPYL ALCOHOL\PROPOFOL
     Indication: General anaesthesia
     Dosage: NOT PRECISE (NON PR?CIS?E)
     Route: 042
     Dates: start: 20230614, end: 20230614
  6. KETAMINE [Suspect]
     Active Substance: KETAMINE
     Indication: General anaesthesia
     Dosage: NOT PRECISE (NON PR?CIS?E)
     Route: 042
     Dates: start: 20230614, end: 20230614

REACTIONS (7)
  - Distributive shock [Recovered/Resolved]
  - Acute respiratory distress syndrome [Recovered/Resolved]
  - Hypoxia [Recovered/Resolved]
  - Pulmonary oedema [Recovered/Resolved]
  - Hypotension [Recovered/Resolved]
  - Tachycardia [Recovered/Resolved]
  - Product use issue [Unknown]

NARRATIVE: CASE EVENT DATE: 20230614
